FAERS Safety Report 14782630 (Version 1)
Quarter: 2018Q2

REPORT INFORMATION
  Report Type: Report from Study
  Country: DE (occurrence: DE)
  Receive Date: 20180420
  Receipt Date: 20180420
  Transmission Date: 20180711
  Serious: Yes (Hospitalization, Other)
  Sender: FDA-Public Use
  Company Number: DE-ROCHE-1393716

PATIENT
  Age: 60 Year
  Sex: Male
  Weight: 65 kg

DRUGS (18)
  1. VEMURAFENIB. [Suspect]
     Active Substance: VEMURAFENIB
     Indication: METASTATIC MALIGNANT MELANOMA
     Dosage: MOST RECENT DOSE PRIOR TO EVENT:14/OCT/2014?MOST RECENT DOSE (960 MG):12/JAN/2015
     Route: 048
     Dates: start: 20131115
  2. LOPERAMID [Concomitant]
     Active Substance: LOPERAMIDE
     Indication: DIARRHOEA
     Route: 048
     Dates: start: 20140107
  3. AMOXICILLIN. [Concomitant]
     Active Substance: AMOXICILLIN
     Indication: OTITIS MEDIA
     Dosage: SELECT IF ONGOING=YES
     Route: 048
     Dates: start: 20140331, end: 20140406
  4. RAMIPRIL. [Concomitant]
     Active Substance: RAMIPRIL
  5. FRAGMIN [Concomitant]
     Active Substance: DALTEPARIN SODIUM
     Indication: THROMBOSIS PROPHYLAXIS
     Route: 058
     Dates: start: 20141210
  6. CONCOR [Concomitant]
     Active Substance: BISOPROLOL FUMARATE
     Indication: PROPHYLAXIS
     Dosage: INDICATION:PROPHYLAXIS STABILIZING HEART RATE
     Route: 048
     Dates: start: 20131213
  7. PANTOZOL [Concomitant]
     Active Substance: PANTOPRAZOLE SODIUM
     Route: 048
     Dates: start: 20141126
  8. IBUPROFEN. [Concomitant]
     Active Substance: IBUPROFEN
     Indication: ARTHRALGIA
     Dosage: SELECT IF ONGOING=NO
     Route: 048
     Dates: start: 20141010, end: 20141012
  9. MOMETAHEXAL [Concomitant]
     Active Substance: MOMETASONE
     Indication: EAR INFECTION
     Route: 045
     Dates: start: 20140408
  10. MCP [Concomitant]
     Active Substance: METOCLOPRAMIDE HYDROCHLORIDE
     Indication: VOMITING
     Route: 048
     Dates: start: 20141229, end: 20150102
  11. FRAGMIN [Concomitant]
     Active Substance: DALTEPARIN SODIUM
     Indication: THROMBOSIS PROPHYLAXIS
     Route: 058
     Dates: start: 20140507
  12. IBUPROFEN. [Concomitant]
     Active Substance: IBUPROFEN
     Indication: ARTHRALGIA
     Dosage: SELECT IF ONGOING=NO
     Route: 048
     Dates: start: 20140915, end: 20140915
  13. AMOXICILLIN. [Concomitant]
     Active Substance: AMOXICILLIN
     Indication: HYPERTHYROIDISM
     Route: 042
     Dates: start: 20141019
  14. CEFUROXIM [Concomitant]
     Active Substance: CEFUROXIME
     Route: 042
     Dates: start: 201412
  15. COBIMETINIB. [Suspect]
     Active Substance: COBIMETINIB
     Indication: METASTATIC MALIGNANT MELANOMA
     Dosage: MOST RECENT DOSE PRIOR TO EVENT: 14/OCT/2014?MOST RECENT DOSE PRIOR TO QTC PROLONGATION: 13/JAN/2014
     Route: 048
     Dates: start: 20131115
  16. TOREM [Concomitant]
     Active Substance: TORSEMIDE
  17. URBASON [Concomitant]
     Active Substance: METHYLPREDNISOLONE
     Indication: RASH
     Route: 048
     Dates: start: 20141210
  18. FERROSANOL [Concomitant]
     Active Substance: FERROUS GLUCONATE
     Indication: IRON DEFICIENCY
     Route: 048
     Dates: start: 20140819

REACTIONS (5)
  - Dysarthria [Recovered/Resolved]
  - Hyperthyroidism [Recovered/Resolved]
  - Dizziness [Recovered/Resolved]
  - Atrial fibrillation [Recovered/Resolved]
  - Electrocardiogram QT prolonged [Unknown]

NARRATIVE: CASE EVENT DATE: 20140429
